FAERS Safety Report 7904272-8 (Version None)
Quarter: 2011Q4

REPORT INFORMATION
  Report Type: 
  Country: None (occurrence: None)
  Receive Date: 20111109
  Receipt Date: 20111104
  Transmission Date: 20120403
  Serious: Yes (Other)
  Sender: FDA-Public Use
  Company Number: US-ABBOTT-11P-163-0868795-00

PATIENT
  Sex: Female
  Weight: 52.664 kg

DRUGS (5)
  1. HUMIRA [Suspect]
     Indication: CROHN'S DISEASE
     Dates: start: 20100101, end: 20110701
  2. SULFASALAZINE [Concomitant]
     Indication: CROHN'S DISEASE
  3. PROTONIX [Concomitant]
     Indication: PRODUCT USED FOR UNKNOWN INDICATION
  4. HUMIRA [Suspect]
     Dates: start: 20110801
  5. INCONTINENCE MEDICATION [Concomitant]
     Indication: INCONTINENCE

REACTIONS (4)
  - ENDOMETRIOSIS [None]
  - URETERIC INJURY [None]
  - URETERIC OBSTRUCTION [None]
  - PAIN [None]
